FAERS Safety Report 4304254-1 (Version None)
Quarter: 2004Q1

REPORT INFORMATION
  Report Type: 
  Country: None (occurrence: None)
  Receive Date: 20040225
  Receipt Date: 20040213
  Transmission Date: 20041129
  Serious: Yes (Life-Threatening)
  Sender: FDA-Public Use
  Company Number: WAES 0402AUS00158

PATIENT
  Age: 59 Year
  Sex: Female

DRUGS (8)
  1. AMLODIPINE BESYLATE [Concomitant]
  2. ATENOLOL [Concomitant]
  3. GEMFIBROZIL [Suspect]
     Route: 048
     Dates: end: 20030818
  4. HYDROCHLOROTHIAZIDE [Concomitant]
  5. METFORMIN [Concomitant]
  6. NITROGLYCERIN [Concomitant]
  7. PERINDOPRIL ERBUMINE [Concomitant]
  8. ZOCOR [Suspect]
     Route: 048
     Dates: end: 20030818

REACTIONS (5)
  - DIFFICULTY IN WALKING [None]
  - DRUG INTERACTION [None]
  - MYALGIA [None]
  - MYOPATHY [None]
  - RHABDOMYOLYSIS [None]
